FAERS Safety Report 13780951 (Version 1)
Quarter: 2017Q3

REPORT INFORMATION
  Report Type: Spontaneous
  Country: US (occurrence: US)
  Receive Date: 20170722
  Receipt Date: 20170722
  Transmission Date: 20171127
  Serious: Yes (Other)
  Sender: FDA-Public Use
  Company Number: None

PATIENT
  Age: 5 Year
  Sex: Male
  Weight: 18 kg

DRUGS (3)
  1. NIX ULTRA [Suspect]
     Active Substance: DIMETHICONE\MINERAL OIL
     Indication: LICE INFESTATION
     Dosage: ?          QUANTITY:1 APPLICATION;?
     Route: 061
     Dates: start: 20170722, end: 20170722
  2. GUMMY VITAMINS [Concomitant]
  3. RITALIN [Concomitant]
     Active Substance: METHYLPHENIDATE HYDROCHLORIDE

REACTIONS (1)
  - Hallucination [None]

NARRATIVE: CASE EVENT DATE: 20170722
